FAERS Safety Report 7478770-8 (Version None)
Quarter: 2011Q2

REPORT INFORMATION
  Report Type: 
  Country: None (occurrence: None)
  Receive Date: 20110513
  Receipt Date: 20110505
  Transmission Date: 20111010
  Serious: Yes (Hospitalization)
  Sender: FDA-Public Use
  Company Number: BR-MEDIMMUNE-MEDI-0013168

PATIENT
  Sex: Male
  Weight: 7.8 kg

DRUGS (6)
  1. UNKNOWN POLIVITAMIN [Concomitant]
     Route: 048
     Dates: start: 20100424
  2. MOTILIUM [Concomitant]
     Route: 048
     Dates: start: 20100424
  3. SYNAGIS [Suspect]
     Route: 030
     Dates: start: 20110411, end: 20110411
  4. ALBUTEROL SULFATE AUTOHALER [Concomitant]
     Route: 048
     Dates: start: 20100424, end: 20110418
  5. FOLIC ACID [Concomitant]
     Route: 048
     Dates: start: 20100424
  6. BUDESONIDE [Concomitant]
     Route: 048
     Dates: start: 20100424, end: 20110418

REACTIONS (5)
  - BRONCHIOLITIS [None]
  - NASOPHARYNGITIS [None]
  - INCREASED BRONCHIAL SECRETION [None]
  - DYSPNOEA [None]
  - COUGH [None]
